FAERS Safety Report 6192159-3 (Version None)
Quarter: 2009Q2

REPORT INFORMATION
  Report Type: 
  Country: None (occurrence: None)
  Receive Date: 20090515
  Receipt Date: 20090507
  Transmission Date: 20091009
  Serious: Yes (Other)
  Sender: FDA-Public Use
  Company Number: PHHY2009JP18211

PATIENT

DRUGS (1)
  1. SANDIMMUNE [Suspect]
     Indication: HISTIOCYTOSIS HAEMATOPHAGIC
     Dosage: UNK
     Dates: start: 20090506, end: 20090506

REACTIONS (5)
  - ACCIDENTAL OVERDOSE [None]
  - HYPOTHERMIA [None]
  - IMMUNOSUPPRESSANT DRUG LEVEL INCREASED [None]
  - OEDEMA [None]
  - URINE OUTPUT DECREASED [None]
